FAERS Safety Report 25648573 (Version 4)
Quarter: 2025Q4

REPORT INFORMATION
  Report Type: Report from Study
  Country: US (occurrence: US)
  Receive Date: 20250806
  Receipt Date: 20251212
  Transmission Date: 20260118
  Serious: Yes (Hospitalization, Other)
  Sender: ABBVIE
  Company Number: US-ABBVIE-6275437

PATIENT
  Age: 71 Year
  Sex: Male

DRUGS (1)
  1. SKYRIZI [Suspect]
     Active Substance: RISANKIZUMAB-RZAA
     Indication: Psoriasis
     Dosage: FORM STRENGTH: 150MG/ML
     Route: 058
     Dates: start: 20250415, end: 20251127

REACTIONS (15)
  - Brain stem haemorrhage [Unknown]
  - Headache [Not Recovered/Not Resolved]
  - Dyspnoea exertional [Not Recovered/Not Resolved]
  - Rash macular [Recovering/Resolving]
  - Decreased appetite [Not Recovered/Not Resolved]
  - Dysarthria [Not Recovered/Not Resolved]
  - Psoriasis [Recovering/Resolving]
  - Drug ineffective [Unknown]
  - Dry skin [Not Recovered/Not Resolved]
  - Skin discharge [Unknown]
  - Rash [Not Recovered/Not Resolved]
  - Pain in extremity [Unknown]
  - Skin fissures [Unknown]
  - Skin haemorrhage [Recovering/Resolving]
  - Insomnia [Unknown]

NARRATIVE: CASE EVENT DATE: 20250101
